FAERS Safety Report 20663482 (Version 1)
Quarter: 2022Q2

REPORT INFORMATION
  Report Type: Spontaneous
  Country: KR (occurrence: KR)
  Receive Date: 20220401
  Receipt Date: 20220401
  Transmission Date: 20220721
  Serious: Yes (Other)
  Sender: FDA-Public Use
  Company Number: KR-ELI_LILLY_AND_COMPANY-KR202203012674

PATIENT
  Age: 56 Year
  Sex: Male

DRUGS (2)
  1. OLANZAPINE [Suspect]
     Active Substance: OLANZAPINE
     Indication: Prophylaxis
     Dosage: 10 MG, UNKNOWN
     Route: 030
     Dates: start: 20131105, end: 20131105
  2. LORAZEPAM [Suspect]
     Active Substance: LORAZEPAM
     Indication: Prophylaxis
     Dosage: 2 MG, UNKNOWN
     Route: 042
     Dates: start: 20131105, end: 20131105

REACTIONS (1)
  - Hypotension [Recovered/Resolved]

NARRATIVE: CASE EVENT DATE: 20131105
